FAERS Safety Report 5636825-4 (Version None)
Quarter: 2008Q1

REPORT INFORMATION
  Report Type: 
  Country: None (occurrence: None)
  Receive Date: 20080220
  Receipt Date: 20080220
  Transmission Date: 20080703
  Serious: Yes (Other)
  Sender: FDA-Public Use
  Company Number: None

PATIENT
  Age: 57 Year
  Sex: Male
  Weight: 122.4712 kg

DRUGS (3)
  1. PLAVIX [Suspect]
     Indication: EPISTAXIS
     Dosage: ONCE DAILY
     Dates: start: 20070714, end: 20080213
  2. PLAVIX [Suspect]
     Indication: HAEMORRHAGE
     Dosage: ONCE DAILY
     Dates: start: 20070714, end: 20080213
  3. PLAVIX [Suspect]
     Indication: SINUS DISORDER
     Dosage: ONCE DAILY
     Dates: start: 20070714, end: 20080213

REACTIONS (4)
  - EPISTAXIS [None]
  - HAEMORRHAGE [None]
  - SINUS DISORDER [None]
  - SINUSITIS [None]
